FAERS Safety Report 7952843-5 (Version None)
Quarter: 2011Q4

REPORT INFORMATION
  Report Type: 
  Country: None (occurrence: None)
  Receive Date: 20111201
  Receipt Date: 20111121
  Transmission Date: 20120403
  Serious: Yes (Death, Hospitalization)
  Sender: FDA-Public Use
  Company Number: GB-TEVA-305338ISR

PATIENT
  Sex: Female
  Weight: 50.88 kg

DRUGS (21)
  1. NOVOLOG MIX 70/30 [Concomitant]
     Dosage: 20 IU (INTERNATIONAL UNIT);
     Dates: start: 20110313
  2. GLICLAZIDE [Concomitant]
     Dosage: 320 MILLIGRAM;
     Route: 048
     Dates: start: 20090101
  3. MIRTAZAPINE [Concomitant]
     Dosage: 15 MILLIGRAM; NOCTE
     Route: 048
     Dates: start: 20090101
  4. FUROSEMIDE [Suspect]
     Dosage: 20 MILLIGRAM;
     Route: 048
     Dates: start: 20110225, end: 20110228
  5. AMOXICILLIN AND CLAVULANATE POTASSIUM [Concomitant]
  6. ADCAL-D3 [Concomitant]
     Dosage: 1 DOSAGE FORMS; MANE
     Route: 048
     Dates: start: 20090101
  7. LACTULOSE [Concomitant]
     Dosage: 10 ML; NOCTE
     Route: 048
     Dates: start: 20090101
  8. NOVOLOG MIX 70/30 [Concomitant]
     Dosage: 38 IU (INTERNATIONAL UNIT); MANE
     Dates: start: 20101004
  9. FUROSEMIDE [Suspect]
     Dosage: 20 MILLIGRAM;
     Route: 048
     Dates: start: 20100409, end: 20110412
  10. FLUTICASONE PROPIONATE/SALMETEROL [Concomitant]
     Dosage: INHALATION 25MCG/250MCG
     Dates: start: 20090101
  11. LANTUS [Concomitant]
     Dosage: NOCTE
     Dates: start: 20110114
  12. FERROUS FUMARATE [Concomitant]
     Dosage: 100 MILLIGRAM; MANE
     Route: 048
     Dates: start: 20090101
  13. SIMVASTATIN [Concomitant]
     Dosage: 40 MILLIGRAM; NOCTE
     Route: 048
     Dates: start: 20090101
  14. FUROSEMIDE [Suspect]
     Dosage: 40 MILLIGRAM;
     Route: 048
     Dates: start: 20110301, end: 20110304
  15. VITAMIN D AND IRON [Concomitant]
     Route: 048
  16. CALCIUM [Concomitant]
     Route: 048
  17. LANSOPRAZOLE [Concomitant]
     Dosage: 30 MILLIGRAM; MANE
     Route: 048
     Dates: start: 20090101
  18. LANTUS [Concomitant]
     Dosage: 26 IU (INTERNATIONAL UNIT);
     Dates: start: 20110316
  19. ADIZEM-XL [Concomitant]
     Dosage: 240 MILLIGRAM; MANE
     Route: 048
     Dates: start: 20090101
  20. CITALOPRAM [Concomitant]
     Dosage: 20 MILLIGRAM; MANE
     Route: 048
     Dates: start: 20090101
  21. ASPIRIN [Concomitant]
     Dosage: 75 MILLIGRAM; MANE
     Route: 048
     Dates: start: 20090101

REACTIONS (24)
  - RESTLESSNESS [None]
  - DYSKINESIA [None]
  - HYPERTENSION [None]
  - AGITATION [None]
  - ASTHENIA [None]
  - DEATH [None]
  - DYSPNOEA [None]
  - PANIC ATTACK [None]
  - GASTRIC DILATATION [None]
  - SLEEP DISORDER [None]
  - HEART RATE IRREGULAR [None]
  - TINNITUS [None]
  - BALANCE DISORDER [None]
  - SHOCK [None]
  - LOSS OF CONSCIOUSNESS [None]
  - ANXIETY [None]
  - DELIRIUM [None]
  - HALLUCINATION [None]
  - BLOOD GLUCOSE DECREASED [None]
  - HYPONATRAEMIA [None]
  - CONFUSIONAL STATE [None]
  - ORAL CANDIDIASIS [None]
  - HYPERHIDROSIS [None]
  - HEART RATE INCREASED [None]
